FAERS Safety Report 7165425-2 (Version None)
Quarter: 2010Q4

REPORT INFORMATION
  Report Type: 
  Country: None (occurrence: None)
  Receive Date: 20101215
  Receipt Date: 20100114
  Transmission Date: 20110411
  Serious: No
  Sender: FDA-Public Use
  Company Number: US-AMGEN-TCS381123

PATIENT

DRUGS (10)
  1. ENBREL [Suspect]
     Indication: RHEUMATOID ARTHRITIS
     Dosage: 50 MG, QWK
     Route: 058
     Dates: start: 20090801
  2. METHOTREXATE [Concomitant]
     Dosage: 12.5 MG, QWK
     Route: 048
  3. PREDNISONE [Concomitant]
  4. CELECOXIB [Concomitant]
  5. CETIRIZINE HYDROCHLORIDE [Concomitant]
  6. ESZOPICLONE [Concomitant]
  7. TOPIRAMATE [Concomitant]
  8. CALCIUM [Concomitant]
  9. ERGOCALCIFEROL [Concomitant]
  10. OMEPRAZOLE [Concomitant]

REACTIONS (6)
  - BRONCHITIS [None]
  - BUTTERFLY RASH [None]
  - FALL [None]
  - IMPAIRED HEALING [None]
  - INJECTION SITE ERYTHEMA [None]
  - INJECTION SITE PRURITUS [None]
